FAERS Safety Report 18103159 (Version 1)
Quarter: 2020Q3

REPORT INFORMATION
  Report Type: Spontaneous
  Country: US (occurrence: US)
  Receive Date: 20200801
  Receipt Date: 20200801
  Transmission Date: 20201103
  Serious: No
  Sender: FDA-Public Use
  Company Number: None

PATIENT
  Age: 63 Year
  Sex: Male

DRUGS (13)
  1. ACETAMINOPHEN 1000MG TAB [Concomitant]
     Dates: start: 20200527, end: 20200611
  2. SPIRIVA 18MCG CAP [Concomitant]
     Dates: start: 20200528, end: 20200606
  3. FUROSEMIDE 40MG INJ [Concomitant]
     Dates: start: 20200528, end: 20200529
  4. LANTUS [Concomitant]
     Active Substance: INSULIN GLARGINE
     Dates: start: 20200528, end: 20200607
  5. REMDESIVIR. [Suspect]
     Active Substance: REMDESIVIR
     Indication: COVID-19
     Dosage: ?          OTHER FREQUENCY:ONCE;?
     Route: 041
     Dates: start: 20200529, end: 20200602
  6. SOLU?MEDROL [Concomitant]
     Active Substance: METHYLPREDNISOLONE SODIUM SUCCINATE
     Dates: start: 20200528, end: 20200602
  7. LOVENOX 70MG SYR [Concomitant]
     Dates: start: 20200528, end: 20200530
  8. GAUIFENESIN?DEXTROMETHORPHAN 100MG/10MG/5ML [Concomitant]
     Dates: start: 20200529, end: 20200611
  9. AZITHROMYCIN 500MG IN NS 250ML [Concomitant]
     Dates: start: 20200528, end: 20200529
  10. HUMALOG [Concomitant]
     Active Substance: INSULIN LISPRO
     Dates: start: 20200528, end: 20200607
  11. PROVENTIL HFA [Concomitant]
     Active Substance: ALBUTEROL SULFATE
     Dates: start: 20200528, end: 20200606
  12. CEFTRIAXONE 1G IN 100ML NS [Concomitant]
     Dates: start: 20200528, end: 20200531
  13. HUMULIN R [Concomitant]
     Active Substance: INSULIN HUMAN
     Dates: start: 20200529, end: 20200530

REACTIONS (1)
  - Hepatic function abnormal [None]

NARRATIVE: CASE EVENT DATE: 20200529
